FAERS Safety Report 7671803-5 (Version None)
Quarter: 2011Q3

REPORT INFORMATION
  Report Type: 
  Country: None (occurrence: None)
  Receive Date: 20110809
  Receipt Date: 20110802
  Transmission Date: 20111222
  Serious: Yes (Hospitalization)
  Sender: FDA-Public Use
  Company Number: FR-TEVA-295132ISR

PATIENT
  Age: 74 Year
  Sex: Male

DRUGS (5)
  1. FLUOROURACIL [Suspect]
     Indication: GASTRIC CANCER
     Dates: start: 20100118, end: 20100301
  2. IRINOTECAN HCL [Suspect]
     Indication: GASTRIC CANCER
     Route: 042
     Dates: start: 20100118, end: 20100301
  3. LEUCOVORIN CALCIUM [Suspect]
     Indication: GASTRIC CANCER
     Dates: start: 20100118, end: 20100301
  4. VALSARTAN [Concomitant]
  5. NEXIUM [Concomitant]

REACTIONS (1)
  - CEREBROVASCULAR ACCIDENT [None]
